FAERS Safety Report 6171809-1 (Version None)
Quarter: 2009Q2

REPORT INFORMATION
  Report Type: 
  Country: None (occurrence: None)
  Receive Date: 20090429
  Receipt Date: 20090427
  Transmission Date: 20091009
  Serious: Yes (Hospitalization)
  Sender: FDA-Public Use
  Company Number: GB-ROCHE-625079

PATIENT
  Sex: Male
  Weight: 99.7 kg

DRUGS (10)
  1. ORLISTAT [Suspect]
     Indication: OBESITY
     Route: 048
     Dates: start: 20081010
  2. TRAMADOL HCL [Concomitant]
     Indication: PAIN
     Route: 048
  3. PARACETAMOL [Concomitant]
     Indication: PAIN
     Route: 048
  4. RAMIPRIL [Concomitant]
     Route: 048
  5. BISOPROLOL FUMARATE [Concomitant]
     Route: 048
  6. CLOPIDOGREL [Concomitant]
     Route: 048
  7. OMEPRAZOLE [Concomitant]
     Route: 048
  8. AMITRIPTLINE HYDROCHLORIDE TAB [Concomitant]
     Indication: PAIN
     Dosage: DRUG NAME WAS REPORTED AS AMOTRIPTYLINE
     Route: 048
  9. METFORMIN HCL [Concomitant]
     Route: 048
  10. NOVAMIX [Concomitant]
     Dosage: DOSE: 76 UNIT TWICE DAILY; DRUG NAME: NOVA MIX 30

REACTIONS (1)
  - CHEST PAIN [None]
